FAERS Safety Report 7548959-8 (Version None)
Quarter: 2011Q2

REPORT INFORMATION
  Report Type: 
  Country: None (occurrence: None)
  Receive Date: 20110615
  Receipt Date: 20110609
  Transmission Date: 20111010
  Serious: Yes (Other)
  Sender: FDA-Public Use
  Company Number: US-PFIZER INC-2011126985

PATIENT
  Sex: Female

DRUGS (5)
  1. CHANTIX [Suspect]
     Dosage: 1 MG, UNK
     Dates: start: 20110607
  2. SYNTHROID [Concomitant]
     Dosage: UNK
  3. CHANTIX [Suspect]
     Dosage: UNK
  4. CALCIUM [Concomitant]
     Dosage: UNK
  5. CHANTIX [Suspect]
     Indication: SMOKING CESSATION THERAPY
     Dosage: 0.5 MG, 1X/DAY
     Route: 048

REACTIONS (2)
  - MOOD ALTERED [None]
  - MENTAL DISORDER [None]
